FAERS Safety Report 5724247-7 (Version None)
Quarter: 2008Q2

REPORT INFORMATION
  Report Type: 
  Country: None (occurrence: None)
  Receive Date: 20080424
  Receipt Date: 20071030
  Transmission Date: 20081010
  Serious: Yes (Other)
  Sender: FDA-Public Use
  Company Number: TEST00207033499

PATIENT
  Sex: Male
  Weight: 125 kg

DRUGS (8)
  1. ANDROGEL [Suspect]
     Indication: LIBIDO DECREASED
     Dosage: 5 GRAM(S) QD TRANSCUTANEOUS DAILY DOSE: 5 GRAM(S)
  2. SYNTHRODI (LEVOTHYROXINE SODIUM) [Concomitant]
  3. EFFEXOR [Concomitant]
  4. ASPIRIN [Concomitant]
  5. ADVICOR [Concomitant]
  6. ZYRTEC [Concomitant]
  7. CABERGOLINE [Concomitant]
  8. NEXIUM [Concomitant]

REACTIONS (2)
  - INCONTINENCE [None]
  - PROSTATE CANCER [None]
